FAERS Safety Report 10278859 (Version 2)
Quarter: 2014Q3

REPORT INFORMATION
  Report Type: Report from Study
  Country: US (occurrence: US)
  Receive Date: 20140706
  Receipt Date: 20140808
  Transmission Date: 20150326
  Serious: Yes (Other)
  Sender: FDA-Public Use
  Company Number: US-SA-2014SA085325

PATIENT
  Age: 65 Year
  Sex: Female
  Weight: 86.16 kg

DRUGS (15)
  1. AZELASTINE HYDROCHLORIDE. [Concomitant]
     Active Substance: AZELASTINE HYDROCHLORIDE
     Indication: DIABETES MELLITUS
  2. METOPROLOL [Concomitant]
     Active Substance: METOPROLOL
     Indication: DIABETES MELLITUS
     Dosage: 25MG ER AM
  3. LOVASTATIN. [Concomitant]
     Active Substance: LOVASTATIN
     Indication: DIABETES MELLITUS
     Dosage: PM
  4. PRIMIDONE. [Concomitant]
     Active Substance: PRIMIDONE
     Indication: DIABETES MELLITUS
     Dosage: 1/2 PM
  5. RHINOCORT AQUA [Concomitant]
     Active Substance: BUDESONIDE
     Indication: DIABETES MELLITUS
     Dosage: IN THE MORNING, 2 SPRAYS
  6. FLURBIPROFEN. [Concomitant]
     Active Substance: FLURBIPROFEN
     Indication: DIABETES MELLITUS
     Dosage: 2 AM, 1 PM DAILY
  7. ENALAPRIL [Concomitant]
     Active Substance: ENALAPRIL
     Indication: DIABETES MELLITUS
     Dosage: AM
  8. METFORMIN [Concomitant]
     Active Substance: METFORMIN HYDROCHLORIDE
     Indication: DIABETES MELLITUS
     Dosage: ER TAB 1AM+PM
  9. TILAZEM ^ELAN^ [Concomitant]
     Indication: DIABETES MELLITUS
     Dosage: 240 ERC , 1 AM
  10. LANTUS [Suspect]
     Active Substance: INSULIN GLARGINE
     Indication: DIABETES MELLITUS
     Dosage: DOSE: 40 UNITS AM AND 36 UNITS DINNER TIME?FORM: VIAL
     Route: 058
     Dates: start: 201407
  11. NOVOLOG [Concomitant]
     Active Substance: INSULIN ASPART
     Indication: DIABETES MELLITUS
     Dosage: SLIDING PEN: 2-14 AS NEEDED
  12. SERTRALINE [Concomitant]
     Active Substance: SERTRALINE HYDROCHLORIDE
     Indication: DIABETES MELLITUS
     Dosage: PM
  13. FLOVENT [Concomitant]
     Active Substance: FLUTICASONE PROPIONATE
     Indication: DIABETES MELLITUS
     Dosage: 100, PUFF
  14. ASPIRIN. [Concomitant]
     Active Substance: ASPIRIN
     Indication: DIABETES MELLITUS
     Dosage: AM
  15. RANITIDINE [Concomitant]
     Active Substance: RANITIDINE\RANITIDINE HYDROCHLORIDE
     Indication: DIABETES MELLITUS
     Dosage: PM

REACTIONS (3)
  - Drug administration error [Unknown]
  - Abdominal pain [Unknown]
  - Dehydration [Unknown]
